FAERS Safety Report 20145637 (Version 3)
Quarter: 2022Q1

REPORT INFORMATION
  Report Type: Report from Study
  Country: LT (occurrence: LT)
  Receive Date: 20211203
  Receipt Date: 20220201
  Transmission Date: 20220423
  Serious: Yes (Other)
  Sender: FDA-Public Use
  Company Number: LT-Clinigen Group PLC/ Clinigen Healthcare Ltd-LT-CLGN-21-00571

PATIENT
  Age: 71 Year
  Sex: Male

DRUGS (10)
  1. FOSCAVIR [Suspect]
     Active Substance: FOSCARNET SODIUM
     Indication: Cytomegalovirus infection
     Route: 042
     Dates: start: 20211005, end: 20211011
  2. FOSCAVIR [Suspect]
     Active Substance: FOSCARNET SODIUM
     Route: 042
     Dates: start: 20211012, end: 20211022
  3. FOSCAVIR [Suspect]
     Active Substance: FOSCARNET SODIUM
     Route: 042
     Dates: start: 20211023, end: 20211116
  4. FOSCAVIR [Suspect]
     Active Substance: FOSCARNET SODIUM
     Route: 042
     Dates: start: 20211117, end: 20211123
  5. FOSCAVIR [Suspect]
     Active Substance: FOSCARNET SODIUM
     Dates: start: 20211123, end: 20211214
  6. VALGANCICLOVIR [Concomitant]
     Active Substance: VALGANCICLOVIR
     Indication: Cytomegalovirus infection
     Route: 048
     Dates: start: 20210806, end: 20210820
  7. VALGANCICLOVIR [Concomitant]
     Active Substance: VALGANCICLOVIR
     Route: 048
     Dates: start: 20210821, end: 20210921
  8. GANCICLOVIR [Concomitant]
     Active Substance: GANCICLOVIR
     Indication: Cytomegalovirus infection
     Route: 042
     Dates: start: 20210922, end: 20211004
  9. HUMAN IMMUNOGLOBULIN G [Concomitant]
     Active Substance: HUMAN IMMUNOGLOBULIN G
     Indication: Cytomegalovirus infection
     Route: 042
     Dates: end: 20211022
  10. HUMAN IMMUNOGLOBULIN G [Concomitant]
     Active Substance: HUMAN IMMUNOGLOBULIN G
     Route: 042
     Dates: start: 20211023, end: 20211116

REACTIONS (3)
  - Vomiting [Not Recovered/Not Resolved]
  - Hepatic function abnormal [Recovered/Resolved]
  - Therapy non-responder [Unknown]

NARRATIVE: CASE EVENT DATE: 20211025
